FAERS Safety Report 6254655-X (Version None)
Quarter: 2009Q3

REPORT INFORMATION
  Report Type: 
  Country: None (occurrence: None)
  Receive Date: 20090702
  Receipt Date: 20090625
  Transmission Date: 20100115
  Serious: Yes (Hospitalization)
  Sender: FDA-Public Use
  Company Number: B0580633A

PATIENT
  Sex: Female

DRUGS (8)
  1. AUGMENTIN '125' [Suspect]
     Indication: TOOTH ABSCESS
     Dosage: 1G THREE TIMES PER DAY
     Route: 048
     Dates: start: 20090407, end: 20090410
  2. BIRODOGYL [Suspect]
     Indication: TOOTH ABSCESS
     Dosage: 2UNIT TWICE PER DAY
     Route: 048
     Dates: start: 20090401, end: 20090403
  3. FUCIDINE CAP [Suspect]
     Indication: SKIN LESION
     Dosage: 1UNIT PER DAY
     Route: 061
     Dates: start: 20090401, end: 20090407
  4. LACTEOL [Suspect]
     Route: 048
     Dates: start: 20090408, end: 20090410
  5. ULTRA LEVURE [Suspect]
     Dosage: 50MG UNKNOWN
     Route: 048
     Dates: start: 20090408, end: 20090410
  6. TRIFLUCAN [Suspect]
     Route: 048
     Dates: start: 20090408, end: 20090410
  7. COAPROVEL [Concomitant]
     Route: 065
  8. MESALAZINE [Concomitant]
     Route: 065

REACTIONS (10)
  - ANAEMIA [None]
  - ASTHENIA [None]
  - BONE MARROW FAILURE [None]
  - DECREASED APPETITE [None]
  - DIARRHOEA [None]
  - GENERAL PHYSICAL HEALTH DETERIORATION [None]
  - GRANULOCYTES MATURATION ARREST [None]
  - HYPERTHERMIA [None]
  - LEUKOPENIA [None]
  - NEUTROPENIA [None]
